FAERS Safety Report 23801283 (Version 1)
Quarter: 2024Q2

REPORT INFORMATION
  Report Type: Spontaneous
  Country: US (occurrence: US)
  Receive Date: 20240430
  Receipt Date: 20240430
  Transmission Date: 20240716
  Serious: No
  Sender: FDA-Public Use
  Company Number: US-SA-SAC20240425000138

PATIENT
  Sex: Female
  Weight: 22.67 kg

DRUGS (1)
  1. DUPIXENT [Suspect]
     Active Substance: DUPILUMAB
     Indication: Dermatitis atopic
     Dosage: 300 MG, QM
     Route: 058

REACTIONS (6)
  - Heart rate increased [Unknown]
  - Tachycardia [Unknown]
  - Alopecia [Unknown]
  - Skin discolouration [Unknown]
  - Rash erythematous [Unknown]
  - Pruritus [Unknown]
